FAERS Safety Report 8288895-5 (Version None)
Quarter: 2012Q2

REPORT INFORMATION
  Report Type: 
  Country: None (occurrence: None)
  Receive Date: 20120412
  Receipt Date: 20120328
  Transmission Date: 20120825
  Serious: Yes (Hospitalization)
  Sender: FDA-Public Use
  Company Number: DSJ-2012-06168

PATIENT
  Age: 78 Year
  Sex: Female

DRUGS (3)
  1. CLONAZEPAM [Concomitant]
  2. AMLODIPINE BESYLATE AND OLMESARTAN MEDOXOMIL [Suspect]
     Indication: HYPERTENSION
     Dosage: 40/5 MG (1 IN 1 D), PER ORAL
     Route: 048
     Dates: start: 20100101
  3. ACETYLSALICYLIC ACID SRT [Concomitant]

REACTIONS (1)
  - EYE EXCISION [None]
